FAERS Safety Report 8327717-0 (Version None)
Quarter: 2012Q2

REPORT INFORMATION
  Report Type: 
  Country: None (occurrence: None)
  Receive Date: 20120502
  Receipt Date: 20120424
  Transmission Date: 20120825
  Serious: Yes (Hospitalization)
  Sender: FDA-Public Use
  Company Number: US-PFIZER INC-2012103567

PATIENT
  Age: 58 Year
  Sex: Female

DRUGS (14)
  1. SAVELLA [Suspect]
     Indication: FIBROMYALGIA
     Dosage: 12.5 MG, 2X/DAY (2 IN 1 D)
     Dates: start: 20110101, end: 20110101
  2. SAVELLA [Suspect]
     Dosage: 25 MG, 2X/DAY (2 IN 1 D)
     Dates: start: 20110101, end: 20110101
  3. SAVELLA [Suspect]
     Dosage: 100 MG, 2X/DAY
     Dates: end: 20120301
  4. OXYCONTIN [Concomitant]
     Dosage: UNK
  5. COREG [Concomitant]
     Dosage: UNK
  6. XANAX [Concomitant]
     Dosage: UNK
  7. SAVELLA [Suspect]
     Dosage: 100 MG, 1X/DAY
     Dates: start: 20120301, end: 20120101
  8. LASIX [Concomitant]
     Dosage: UNK
  9. SAVELLA [Suspect]
     Dosage: 50 MG, 2X/DAY (2 IN 1 D)
     Dates: start: 20110101
  10. LYRICA [Suspect]
     Dosage: UNK
  11. SAVELLA [Suspect]
     Indication: MYOFASCIAL PAIN SYNDROME
     Dosage: 12.5 MG, 1X/DAY (1 IN 1 D)
     Dates: start: 20110501, end: 20110501
  12. SAVELLA [Suspect]
     Dosage: 50 MG, 1X/DAY
     Dates: start: 20120101
  13. LIPITOR [Concomitant]
     Dosage: UNK
  14. LEXAPRO [Concomitant]
     Dosage: UNK

REACTIONS (1)
  - RENAL FAILURE ACUTE [None]
